FAERS Safety Report 5292661-2 (Version None)
Quarter: 2007Q2

REPORT INFORMATION
  Report Type: 
  Country: None (occurrence: None)
  Receive Date: 20070404
  Receipt Date: 20070323
  Transmission Date: 20071010
  Serious: Yes (Other)
  Sender: FDA-Public Use
  Company Number: 2007SP005620

PATIENT
  Age: 46 Year
  Sex: Male

DRUGS (2)
  1. INTRON A [Suspect]
     Indication: HEPATITIS C
     Dosage: TIW
     Dates: start: 20000101, end: 20010101
  2. REBETOL [Suspect]
     Indication: HEPATITIS C
     Dosage: PO
     Route: 048
     Dates: start: 20000101, end: 20010101

REACTIONS (8)
  - ANAEMIA [None]
  - ANXIETY [None]
  - CHROMATURIA [None]
  - CONFUSIONAL STATE [None]
  - FAECES DISCOLOURED [None]
  - HEPATIC CIRRHOSIS [None]
  - MENTAL IMPAIRMENT [None]
  - THERAPEUTIC RESPONSE DECREASED [None]
